FAERS Safety Report 10160470 (Version 1)
Quarter: 2014Q2

REPORT INFORMATION
  Report Type: Spontaneous
  Country: US (occurrence: US)
  Receive Date: 20140508
  Receipt Date: 20140508
  Transmission Date: 20141212
  Serious: Yes (Life-Threatening)
  Sender: FDA-Public Use
  Company Number: US-PFIZER INC-2014124944

PATIENT
  Age: 45 Year
  Sex: Female
  Weight: 61.22 kg

DRUGS (1)
  1. LYRICA [Suspect]
     Indication: MYOTONIC DYSTROPHY
     Dosage: 75 MG, UNK
     Dates: end: 201403

REACTIONS (2)
  - Myotonic dystrophy [Unknown]
  - Drug withdrawal syndrome [Unknown]
